FAERS Safety Report 20369353 (Version 7)
Quarter: 2023Q1

REPORT INFORMATION
  Report Type: Report from Study
  Country: US (occurrence: None)
  Receive Date: 20220124
  Receipt Date: 20230130
  Transmission Date: 20230417
  Serious: Yes (Hospitalization)
  Sender: FDA-Public Use
  Company Number: US-ROCHE-2972856

PATIENT
  Age: 85 Year
  Sex: Male
  Weight: 61.6 kg

DRUGS (59)
  1. GEMCITABINE [Suspect]
     Active Substance: GEMCITABINE
     Indication: Diffuse large B-cell lymphoma
     Dosage: MOST RECENT DOSE OF STUDY DRUG PRIOR TO AE/SAE: 10/NOV/2021 (1690 MG)
     Route: 042
     Dates: start: 20211110
  2. OXALIPLATIN [Suspect]
     Active Substance: OXALIPLATIN
     Indication: Diffuse large B-cell lymphoma
     Dosage: MOST RECENT DOSE OF STUDY DRUG PRIOR TO AE/SAE: 10/NOV/2021 (169 MG)
     Route: 042
     Dates: start: 20211110
  3. OBINUTUZUMAB [Suspect]
     Active Substance: OBINUTUZUMAB
     Indication: Diffuse large B-cell lymphoma
     Dosage: MOST RECENT DOSE OF STUDY DRUG PRIOR TO AE/SAE ON 09/NOV/2021 (1000MG)
     Route: 042
     Dates: start: 20211109
  4. PEGFILGRASTIM [Suspect]
     Active Substance: PEGFILGRASTIM
     Indication: Diffuse large B-cell lymphoma
     Route: 057
     Dates: start: 20211111, end: 20220626
  5. ALLOPURINOL [Concomitant]
     Active Substance: ALLOPURINOL
     Indication: Prophylaxis
     Route: 048
     Dates: start: 20211105, end: 20220626
  6. SULFAMETHOXAZOLE\TRIMETHOPRIM [Concomitant]
     Active Substance: SULFAMETHOXAZOLE\TRIMETHOPRIM
     Indication: Prophylaxis
     Route: 048
     Dates: start: 20211105, end: 20220626
  7. ACYCLOVIR [Concomitant]
     Active Substance: ACYCLOVIR
     Indication: Prophylaxis
     Route: 048
     Dates: start: 20211105, end: 20220626
  8. PROCHLORPERAZINE [Concomitant]
     Active Substance: PROCHLORPERAZINE
     Indication: Prophylaxis
     Route: 048
     Dates: start: 20211105, end: 20220626
  9. ONDANSETRON [Concomitant]
     Active Substance: ONDANSETRON
     Indication: Prophylaxis
     Route: 048
     Dates: start: 20211105, end: 20220626
  10. ONDANSETRON [Concomitant]
     Active Substance: ONDANSETRON
     Route: 042
     Dates: start: 20211110, end: 20220626
  11. ACETAMINOPHEN [Concomitant]
     Active Substance: ACETAMINOPHEN
     Indication: Prophylaxis
     Route: 048
     Dates: start: 20211109, end: 20220626
  12. ACETAMINOPHEN [Concomitant]
     Active Substance: ACETAMINOPHEN
     Indication: Non-cardiac chest pain
     Route: 042
     Dates: start: 20211113, end: 20211113
  13. DEXAMETHASONE [Concomitant]
     Active Substance: DEXAMETHASONE
     Indication: Prophylaxis
     Route: 042
     Dates: start: 20211109, end: 20220626
  14. DEXAMETHASONE [Concomitant]
     Active Substance: DEXAMETHASONE
     Route: 042
     Dates: start: 20211110, end: 20220626
  15. DEXAMETHASONE [Concomitant]
     Active Substance: DEXAMETHASONE
     Route: 048
     Dates: start: 20211115, end: 20211122
  16. FAMOTIDINE [Concomitant]
     Active Substance: FAMOTIDINE
     Indication: Prophylaxis
     Route: 042
     Dates: start: 20211109, end: 20220626
  17. PIPERACILLIN AND TAZOBACTAM [Concomitant]
     Active Substance: PIPERACILLIN SODIUM\TAZOBACTAM SODIUM
     Indication: Pneumonia
     Route: 042
     Dates: start: 20211113, end: 20211113
  18. VANCOMYCIN [Concomitant]
     Active Substance: VANCOMYCIN
     Indication: Pneumonia
     Route: 042
     Dates: start: 20211113, end: 20211113
  19. VANCOMYCIN [Concomitant]
     Active Substance: VANCOMYCIN
     Route: 042
     Dates: start: 20211204, end: 20211204
  20. VANCOMYCIN [Concomitant]
     Active Substance: VANCOMYCIN
     Route: 042
     Dates: start: 20211204, end: 20211204
  21. MORPHINE [Concomitant]
     Active Substance: MORPHINE
     Indication: Non-cardiac chest pain
     Route: 042
     Dates: start: 20211113, end: 20211113
  22. ALBUTEROL [Concomitant]
     Active Substance: ALBUTEROL
     Indication: Cough
     Dosage: DOSE: 1 PUFF
     Route: 055
     Dates: start: 20211114, end: 20211122
  23. ALBUTEROL [Concomitant]
     Active Substance: ALBUTEROL
     Dosage: DOSE: 1 PUFF
     Route: 055
     Dates: start: 20211123, end: 20220626
  24. METOPROLOL [Concomitant]
     Active Substance: METOPROLOL
     Indication: Coronary artery disease
     Route: 048
     Dates: start: 20210605, end: 20220626
  25. METOPROLOL [Concomitant]
     Active Substance: METOPROLOL
     Route: 048
     Dates: start: 20211203, end: 20211203
  26. METOPROLOL [Concomitant]
     Active Substance: METOPROLOL
     Route: 048
     Dates: start: 20211204, end: 20211207
  27. TRAMADOL [Concomitant]
     Active Substance: TRAMADOL
     Indication: Prophylaxis
     Route: 048
     Dates: start: 20211027, end: 20220626
  28. MEGESTROL [Concomitant]
     Active Substance: MEGESTROL
     Indication: Decreased appetite
     Route: 048
     Dates: start: 20210803, end: 20220626
  29. DOCUSATE SODIUM [Concomitant]
     Active Substance: DOCUSATE SODIUM
     Indication: Constipation
     Route: 048
     Dates: start: 20190612, end: 20220626
  30. CEFTAZIDIME [Concomitant]
     Active Substance: CEFTAZIDIME
     Indication: Pneumonia
     Route: 042
     Dates: start: 20211114, end: 20211115
  31. DOXYCYCLINE [Concomitant]
     Active Substance: DOXYCYCLINE
     Indication: Pneumonia
     Route: 042
     Dates: start: 20211114, end: 20211115
  32. NYSTATIN [Concomitant]
     Active Substance: NYSTATIN
     Indication: Prophylaxis
     Dosage: 500 OTHER
     Route: 048
     Dates: start: 20211114, end: 20211115
  33. ROSUVASTATIN [Concomitant]
     Active Substance: ROSUVASTATIN
     Indication: Hyperlipidaemia
     Route: 048
     Dates: start: 20210605, end: 20220626
  34. CLOPIDOGREL [Concomitant]
     Active Substance: CLOPIDOGREL BISULFATE
     Indication: Coronary artery disease
     Route: 048
     Dates: start: 20210605, end: 20220626
  35. APIXABAN [Concomitant]
     Active Substance: APIXABAN
     Indication: Atrial fibrillation
     Route: 048
     Dates: start: 20190805, end: 20220626
  36. FUROSEMIDE [Concomitant]
     Active Substance: FUROSEMIDE
     Indication: Prophylaxis
     Route: 048
     Dates: start: 20211115, end: 20211115
  37. FUROSEMIDE [Concomitant]
     Active Substance: FUROSEMIDE
     Indication: Oedema
     Route: 048
     Dates: start: 20211124, end: 20220626
  38. FUROSEMIDE [Concomitant]
     Active Substance: FUROSEMIDE
     Indication: Cardiac failure
     Route: 048
     Dates: start: 20211202, end: 20211202
  39. FUROSEMIDE [Concomitant]
     Active Substance: FUROSEMIDE
     Route: 042
     Dates: start: 20211203, end: 20211203
  40. AZITHROMYCIN [Concomitant]
     Active Substance: AZITHROMYCIN
     Indication: Pneumonia
     Route: 048
     Dates: start: 20211115, end: 20211122
  41. MIRALAX [Concomitant]
     Active Substance: POLYETHYLENE GLYCOL 3350
     Indication: Constipation
     Route: 048
     Dates: start: 20210907, end: 20220626
  42. AMIODARONE [Concomitant]
     Active Substance: AMIODARONE
     Indication: Atrial fibrillation
     Route: 042
     Dates: start: 20211204, end: 20211204
  43. AMIODARONE [Concomitant]
     Active Substance: AMIODARONE
     Route: 042
     Dates: start: 20211205, end: 20211205
  44. AMIODARONE [Concomitant]
     Active Substance: AMIODARONE
     Route: 042
     Dates: start: 20211204, end: 20211204
  45. ATORVASTATIN [Concomitant]
     Active Substance: ATORVASTATIN
     Indication: Hyperlipidaemia
     Route: 048
     Dates: start: 20211201, end: 20211207
  46. BUDESONIDE [Concomitant]
     Active Substance: BUDESONIDE
     Dates: start: 20211202, end: 20211207
  47. CHOLECALCIFEROL [Concomitant]
     Active Substance: CHOLECALCIFEROL
     Indication: Prophylaxis
     Dosage: 1000 U
     Route: 048
     Dates: start: 20211201, end: 20220626
  48. PEGFILGRASTIM [Concomitant]
     Active Substance: PEGFILGRASTIM
     Indication: Prophylaxis
     Route: 058
     Dates: start: 20211111
  49. FERROUS SULFATE [Concomitant]
     Active Substance: FERROUS SULFATE
     Indication: Anaemia
     Route: 048
     Dates: start: 20211201, end: 20220626
  50. LACTOBACILLUS RHAMNOSUS [Concomitant]
     Active Substance: LACTOBACILLUS RHAMNOSUS
     Route: 048
     Dates: start: 20211130, end: 20211207
  51. LEVOFLOXACIN [Concomitant]
     Active Substance: LEVOFLOXACIN
     Route: 042
     Dates: start: 20211130, end: 20211202
  52. MAGNESIUM SULFATE [Concomitant]
     Active Substance: MAGNESIUM SULFATE
     Route: 042
     Dates: start: 20211204, end: 20211206
  53. MAGNESIUM SULFATE [Concomitant]
     Active Substance: MAGNESIUM SULFATE
     Route: 042
     Dates: start: 20211204, end: 20211206
  54. MEROPENEM [Concomitant]
     Active Substance: MEROPENEM
     Route: 042
     Dates: start: 20211204, end: 20211207
  55. MIDODRINE [Concomitant]
     Active Substance: MIDODRINE
     Route: 048
     Dates: start: 20211204, end: 20211204
  56. PHOSPHORUS [Concomitant]
     Active Substance: PHOSPHORUS
     Route: 048
     Dates: start: 20211202, end: 20211206
  57. POTASSIUM CHLORIDE [Concomitant]
     Active Substance: POTASSIUM CHLORIDE
     Dosage: 40 OTHER
     Route: 048
     Dates: start: 20211203, end: 20211206
  58. SODIUM CHLORIDE [Concomitant]
     Active Substance: SODIUM CHLORIDE
     Dosage: 1 SPRAY
     Route: 055
     Dates: start: 20211207, end: 20211207
  59. ZOLPIDEM [Concomitant]
     Active Substance: ZOLPIDEM TARTRATE
     Indication: Insomnia
     Route: 048
     Dates: start: 20211201, end: 20220626

REACTIONS (3)
  - Dyspnoea [Recovered/Resolved]
  - Pneumonia [Recovered/Resolved]
  - Pneumonitis [Recovered/Resolved]

NARRATIVE: CASE EVENT DATE: 20211113
